FAERS Safety Report 9041838 (Version 1)
Quarter: 2013Q1

REPORT INFORMATION
  Report Type: Report from Study
  Country: US (occurrence: US)
  Receive Date: 20130129
  Receipt Date: 20130129
  Transmission Date: 20140127
  Serious: No
  Sender: FDA-Public Use
  Company Number: US-ABBOTT-12P-163-0904534-00

PATIENT
  Age: 54 Year
  Sex: Female

DRUGS (8)
  1. HUMIRA 40 MG/0.8 ML PEN [Suspect]
     Indication: PSORIATIC ARTHROPATHY
     Dates: start: 20120209
  2. METFORMIN [Concomitant]
     Indication: DIABETES MELLITUS
  3. GLIPIZIDE [Concomitant]
     Indication: DIABETES MELLITUS
  4. LORAZEPAM [Concomitant]
     Indication: INSOMNIA
     Dosage: EVENINGS AS REQUIRED
  5. VICODIN [Concomitant]
     Indication: OSTEOARTHRITIS
  6. MOBIC [Concomitant]
     Indication: INFLAMMATION
  7. PRAVASTATIN [Concomitant]
     Indication: BLOOD CHOLESTEROL INCREASED
  8. BABY ASPIRIN [Concomitant]
     Indication: PRODUCT USED FOR UNKNOWN INDICATION
     Dosage: DAILY

REACTIONS (5)
  - Injection site pain [Recovered/Resolved]
  - Dysuria [Unknown]
  - Pain [Unknown]
  - Pain [Recovered/Resolved]
  - Pain [Recovered/Resolved]
